FAERS Safety Report 15734667 (Version 1)
Quarter: 2018Q4

REPORT INFORMATION
  Report Type: Spontaneous
  Country: US (occurrence: US)
  Receive Date: 20181218
  Receipt Date: 20181218
  Transmission Date: 20190205
  Serious: No
  Sender: FDA-Public Use
  Company Number: US-GLAXOSMITHKLINE-US2018GSK214707

PATIENT
  Age: 26 Year
  Sex: Female

DRUGS (1)
  1. BENLYSTA [Suspect]
     Active Substance: BELIMUMAB
     Indication: SYSTEMIC LUPUS ERYTHEMATOSUS
     Dosage: UNK, CYC
     Route: 058
     Dates: start: 201810

REACTIONS (7)
  - Adverse reaction [Unknown]
  - Fatigue [Unknown]
  - Injection site erythema [Recovering/Resolving]
  - Muscle spasms [Unknown]
  - Nausea [Unknown]
  - Flushing [Unknown]
  - Insomnia [Recovered/Resolved]
